FAERS Safety Report 6915349-8 (Version None)
Quarter: 2010Q3

REPORT INFORMATION
  Report Type: 
  Country: None (occurrence: None)
  Receive Date: 20100809
  Receipt Date: 20091111
  Transmission Date: 20110219
  Serious: No
  Sender: FDA-Public Use
  Company Number: US-ABBOTT-09P-163-0608665-00

PATIENT
  Sex: Male
  Weight: 104.42 kg

DRUGS (2)
  1. DEPAKOTE ER [Suspect]
     Indication: BIPOLAR DISORDER
     Route: 048
     Dates: start: 20090601
  2. BUSPAR [Concomitant]
     Indication: ANXIETY
     Route: 048

REACTIONS (2)
  - DRUG INEFFECTIVE [None]
  - TREMOR [None]
